FAERS Safety Report 21146556 (Version 1)
Quarter: 2022Q3

REPORT INFORMATION
  Report Type: Spontaneous
  Country: US (occurrence: US)
  Receive Date: 20220729
  Receipt Date: 20220729
  Transmission Date: 20221026
  Serious: No
  Sender: FDA-Public Use
  Company Number: US-drreddys-SPO/USA/22/0152406

PATIENT
  Age: 16 Year
  Sex: Female

DRUGS (2)
  1. ZENATANE [Suspect]
     Active Substance: ISOTRETINOIN
     Indication: Acne cystic
     Dosage: RMA ISSUE DATE: 19 MARCH 2022 10:20:25 AM, 24 MARCH 2022 05:44:58 PM AND 20 MAY 2022 12:32:16 PM
  2. ZENATANE [Suspect]
     Active Substance: ISOTRETINOIN
     Dosage: RMA ISSUE DATE: 20 MAY 2022 10:59:42 AM

REACTIONS (3)
  - Eye disorder [Unknown]
  - Back pain [Unknown]
  - Product use in unapproved indication [Unknown]
